FAERS Safety Report 6306626-2 (Version None)
Quarter: 2009Q3

REPORT INFORMATION
  Report Type: 
  Country: None (occurrence: None)
  Receive Date: 20090812
  Receipt Date: 20090804
  Transmission Date: 20100115
  Serious: Yes (Death, Hospitalization)
  Sender: FDA-Public Use
  Company Number: B0313725B

PATIENT
  Sex: Female
  Weight: 66 kg

DRUGS (16)
  1. GW572016 [Suspect]
     Dosage: 1250MG PER DAY
     Route: 048
     Dates: start: 20030909, end: 20031103
  2. BUPIVACAINE [Concomitant]
  3. CLAFORAN [Concomitant]
  4. AMOXICILLIN TRIHYDRATE [Concomitant]
  5. DICLOFENAC [Concomitant]
  6. FLAGYL [Concomitant]
  7. FUROSEMIDE [Concomitant]
  8. GENTAMICIN [Concomitant]
  9. PANTOZOL [Concomitant]
  10. PARACETAMOL [Concomitant]
  11. TRAMAL [Concomitant]
  12. ZOFRAN [Concomitant]
  13. FENTANYL [Concomitant]
  14. FRAXIPARINE [Concomitant]
  15. MORPHINE [Concomitant]
  16. NEURONTIN [Concomitant]

REACTIONS (2)
  - PAIN [None]
  - SUTURE RUPTURE [None]
